FAERS Safety Report 15318666 (Version 2)
Quarter: 2018Q3

REPORT INFORMATION
  Report Type: Spontaneous
  Country: US (occurrence: US)
  Receive Date: 20180826
  Receipt Date: 20180827
  Transmission Date: 20181010
  Serious: Yes (Death, Hospitalization)
  Sender: FDA-Public Use
  Company Number: US-CELGENEUS-USA-20180807300

PATIENT
  Age: 73 Year
  Sex: Male

DRUGS (1)
  1. REVLIMID [Suspect]
     Active Substance: LENALIDOMIDE
     Indication: MYELODYSPLASTIC SYNDROME
     Dosage: 10 MILLIGRAM
     Route: 048
     Dates: start: 20180504

REACTIONS (6)
  - Respiratory failure [Unknown]
  - Thrombocytopenia [Unknown]
  - Death [Fatal]
  - Septic shock [Unknown]
  - Pneumonia aspiration [Unknown]
  - Anaemia [Unknown]

NARRATIVE: CASE EVENT DATE: 2018
